FAERS Safety Report 9771827 (Version 1)
Quarter: 2013Q3

REPORT INFORMATION
  Report Type: Spontaneous
  Country: IT (occurrence: None)
  Receive Date: 20130923
  Receipt Date: 20130923
  Transmission Date: 20140515
  Serious: Yes (Other)
  Sender: FDA-Public Use
  Company Number: DKLU1057216

PATIENT
  Age: 13 Month
  Sex: Female

DRUGS (1)
  1. COSMEGEN (DACTINOMYCIN) (UNKNOWN) (DACTINOMYCIN) [Suspect]
     Indication: RENAL MASS

REACTIONS (2)
  - Renal necrosis [None]
  - Nephroblastoma [None]
